FAERS Safety Report 7083003-0 (Version None)
Quarter: 2010Q4

REPORT INFORMATION
  Report Type: 
  Country: None (occurrence: None)
  Receive Date: 20101104
  Receipt Date: 20101028
  Transmission Date: 20110411
  Serious: Yes (Hospitalization)
  Sender: FDA-Public Use
  Company Number: US-BAYER-201034143NA

PATIENT
  Age: 25 Year
  Sex: Female
  Weight: 64 kg

DRUGS (2)
  1. YAZ [Suspect]
     Indication: CONTRACEPTION
     Route: 048
     Dates: start: 20020819, end: 20090128
  2. YASMIN [Suspect]
     Indication: CONTRACEPTION
     Dates: start: 20020819, end: 20090128

REACTIONS (1)
  - PULMONARY EMBOLISM [None]
